FAERS Safety Report 20813313 (Version 1)
Quarter: 2022Q2

REPORT INFORMATION
  Report Type: Spontaneous
  Country: US (occurrence: None)
  Receive Date: 20220510
  Receipt Date: 20220510
  Transmission Date: 20220721
  Serious: No
  Sender: FDA-Public Use
  Company Number: None

PATIENT
  Age: 74 Year
  Sex: Female
  Weight: 43.5 kg

DRUGS (16)
  1. LENALIDOMIDE [Suspect]
     Active Substance: LENALIDOMIDE
     Dosage: FREQUENCY : DAILY; FOR 21 DAYS?
     Route: 048
  2. DEXAMETHASONE [Suspect]
     Active Substance: DEXAMETHASONE
     Dosage: FREQUENCY : WEEKLY;?
     Route: 048
  3. AMIODARONE [Concomitant]
     Active Substance: AMIODARONE
  4. COLACE [Concomitant]
     Active Substance: DOCUSATE SODIUM
  5. CYCLOPHOSPHAMIDE [Concomitant]
     Active Substance: CYCLOPHOSPHAMIDE
  6. ELIQUIS [Concomitant]
     Active Substance: APIXABAN
  7. METOPROLOL [Concomitant]
     Active Substance: METOPROLOL
  8. MEXILETINE [Concomitant]
     Active Substance: MEXILETINE
  9. OLANZAPINE [Concomitant]
     Active Substance: OLANZAPINE
  10. OMEPRAZOLE [Concomitant]
     Active Substance: OMEPRAZOLE
  11. ONDANSETRON [Concomitant]
     Active Substance: ONDANSETRON
  12. SENNA [Concomitant]
     Active Substance: SENNA LEAF\SENNOSIDES\SENNOSIDES A AND B
  13. SPIRONOLACTONE [Concomitant]
     Active Substance: SPIRONOLACTONE
  14. TYLENOL [Concomitant]
     Active Substance: ACETAMINOPHEN
  15. VALACYCLOVIR [Concomitant]
     Active Substance: VALACYCLOVIR HYDROCHLORIDE
  16. VITAMIN D3 [Concomitant]
     Active Substance: CHOLECALCIFEROL

REACTIONS (1)
  - Death [None]
